FAERS Safety Report 4759984-4 (Version None)
Quarter: 2005Q3

REPORT INFORMATION
  Report Type: 
  Country: None (occurrence: None)
  Receive Date: 20050902
  Receipt Date: 20050622
  Transmission Date: 20060218
  Serious: Yes (Hospitalization)
  Sender: FDA-Public Use
  Company Number: FR-NOVOPROD-245025

PATIENT
  Age: 63 Year
  Sex: Male
  Weight: 80 kg

DRUGS (5)
  1. NOVOSEVEN [Suspect]
     Indication: FACTOR VIII DEFICIENCY
     Dosage: 758.4 MG, UNK
     Route: 042
     Dates: start: 20050504, end: 20050519
  2. NOVOSEVEN [Suspect]
     Dosage: 670.8 UNK, UNK
     Route: 042
     Dates: start: 20050521, end: 20050530
  3. EXACYL [Concomitant]
     Dosage: 10 MG/KG EVERY 8 HOURS DURING 2 DAYS
     Route: 042
     Dates: start: 20050524, end: 20050526
  4. EXACYL [Concomitant]
     Dosage: 20 MG/KG, EVERY 6 HOURS DURING 2 DAYS
     Dates: start: 20050527, end: 20050530
  5. EXACYL [Concomitant]
     Dosage: 10 MG/KG, EVERY 6 HOURS DURING 4 DAYS
     Route: 042
     Dates: start: 20050521, end: 20050524

REACTIONS (1)
  - MYOCARDIAL INFARCTION [None]
